FAERS Safety Report 9923943 (Version 1)
Quarter: 2014Q1

REPORT INFORMATION
  Report Type: Spontaneous
  Country: US (occurrence: US)
  Receive Date: 20140225
  Receipt Date: 20140225
  Transmission Date: 20141002
  Serious: No
  Sender: FDA-Public Use
  Company Number: US-AMGEN-USASP2014006751

PATIENT
  Age: 51 Year
  Sex: Female

DRUGS (3)
  1. ENBREL [Suspect]
     Indication: RHEUMATOID ARTHRITIS
     Dosage: 25 MG, TWICE WEEKLY
     Route: 065
  2. ORENCIA [Concomitant]
     Dosage: UNK
  3. CIMZIA [Concomitant]
     Dosage: UNK

REACTIONS (1)
  - Red blood cell sedimentation rate increased [Not Recovered/Not Resolved]
